FAERS Safety Report 16338292 (Version 2)
Quarter: 2019Q3

REPORT INFORMATION
  Report Type: Spontaneous
  Country: JP (occurrence: JP)
  Receive Date: 20190521
  Receipt Date: 20190701
  Transmission Date: 20191004
  Serious: Yes (Disabling, Other)
  Sender: FDA-Public Use
  Company Number: JP-JNJFOC-20190525683

PATIENT
  Age: 81 Year
  Sex: Male
  Weight: 55.7 kg

DRUGS (7)
  1. XARELTO [Suspect]
     Active Substance: RIVAROXABAN
     Indication: ATRIAL FIBRILLATION
     Route: 048
     Dates: start: 20130917, end: 20171018
  2. MAGNESIUM OXIDE. [Concomitant]
     Active Substance: MAGNESIUM OXIDE
     Indication: DYSCHEZIA
     Route: 048
     Dates: start: 20170917
  3. METGLUCO [Concomitant]
     Active Substance: METFORMIN HYDROCHLORIDE
  4. XARELTO [Suspect]
     Active Substance: RIVAROXABAN
     Route: 048
     Dates: start: 20180811
  5. CILNIDIPINE W/VALSARTAN [Concomitant]
     Indication: HYPERTENSION
     Dosage: ATEDIO
     Route: 065
     Dates: start: 20170917
  6. GLACTIV [Concomitant]
     Active Substance: SITAGLIPTIN
     Indication: DIABETES MELLITUS
     Route: 048
  7. XARELTO [Suspect]
     Active Substance: RIVAROXABAN
     Indication: CEREBROVASCULAR ACCIDENT PROPHYLAXIS
     Route: 048
     Dates: start: 20171019, end: 20180803

REACTIONS (4)
  - Embolic cerebral infarction [Recovered/Resolved with Sequelae]
  - Atrial thrombosis [Unknown]
  - Anaemia [Unknown]
  - Aphasia [Unknown]

NARRATIVE: CASE EVENT DATE: 20180804
